FAERS Safety Report 4872928-X (Version None)
Quarter: 2006Q1

REPORT INFORMATION
  Report Type: 
  Country: None (occurrence: None)
  Receive Date: 20060105
  Receipt Date: 20050315
  Transmission Date: 20060701
  Serious: No
  Sender: FDA-Public Use
  Company Number: US-BRISTOL-MYERS SQUIBB COMPANY-12898672

PATIENT
  Sex: Female

DRUGS (1)
  1. SERZONE [Suspect]

REACTIONS (1)
  - ABDOMINAL PAIN [None]
